FAERS Safety Report 9965717 (Version 1)
Quarter: 2014Q1

REPORT INFORMATION
  Report Type: Report from Study
  Country: US (occurrence: US)
  Receive Date: 20140305
  Receipt Date: 20140305
  Transmission Date: 20141002
  Serious: No
  Sender: FDA-Public Use
  Company Number: US-ABBVIE-13P-163-1123410-00

PATIENT
  Sex: Male

DRUGS (1)
  1. HUMIRA [Suspect]
     Indication: CROHN^S DISEASE
     Dates: start: 201004

REACTIONS (11)
  - Paraesthesia [Not Recovered/Not Resolved]
  - Chest pain [Not Recovered/Not Resolved]
  - Hepatic pain [Unknown]
  - Renal pain [Unknown]
  - Stress [Unknown]
  - Anger [Unknown]
  - Headache [Unknown]
  - Headache [Unknown]
  - Impulsive behaviour [Unknown]
  - Injection site pain [Unknown]
  - Rectal haemorrhage [Recovered/Resolved]
